FAERS Safety Report 23793014 (Version 3)
Quarter: 2024Q4

REPORT INFORMATION
  Report Type: Report from Study
  Country: DE (occurrence: DE)
  Receive Date: 20240429
  Receipt Date: 20241002
  Transmission Date: 20250115
  Serious: No
  Sender: ROCHE
  Company Number: DE-ROCHE-3224018

PATIENT
  Age: 52 Year
  Sex: Female
  Weight: 90.0 kg

DRUGS (8)
  1. OCREVUS [Suspect]
     Active Substance: OCRELIZUMAB
     Indication: Relapsing multiple sclerosis
     Route: 042
     Dates: start: 20220127, end: 20220210
  2. OCREVUS [Suspect]
     Active Substance: OCRELIZUMAB
     Route: 042
     Dates: start: 20220825
  3. OMEGA-3 FATTY ACIDS [Concomitant]
     Active Substance: OMEGA-3 FATTY ACIDS
     Indication: Prophylaxis
     Route: 048
  4. IBUPROFEN [Concomitant]
     Active Substance: IBUPROFEN
     Indication: Prophylaxis
     Route: 048
     Dates: start: 20210811
  5. VITAMIN D3;VITAMIN K2 [Concomitant]
     Indication: Vitamin D deficiency
     Route: 048
  6. LERCANIDIPINE [Concomitant]
     Active Substance: LERCANIDIPINE
     Indication: Hypertension
     Route: 048
     Dates: start: 20210521
  7. CIMETIDIN [Concomitant]
     Indication: Premedication
     Route: 042
     Dates: start: 20220127, end: 20220210
  8. PFIZER-BIONTECH COVID-19 VACCINE [Concomitant]
     Active Substance: TOZINAMERAN
     Indication: COVID-19 immunisation
     Route: 030
     Dates: start: 20220611, end: 20220611

REACTIONS (10)
  - Inflammation [Unknown]
  - Epicondylitis [Unknown]
  - Hand fracture [Recovered/Resolved]
  - COVID-19 [Recovered/Resolved]
  - Alanine aminotransferase increased [Recovered/Resolved]
  - Hand dermatitis [Recovered/Resolved]
  - Gastrointestinal infection [Recovered/Resolved]
  - Aspartate aminotransferase increased [Recovered/Resolved]
  - Urinary tract infection [Recovered/Resolved]
  - C-reactive protein increased [Unknown]

NARRATIVE: CASE EVENT DATE: 20220801
